FAERS Safety Report 8540734-0 (Version None)
Quarter: 2012Q3

REPORT INFORMATION
  Report Type: 
  Country: None (occurrence: None)
  Receive Date: 20120726
  Receipt Date: 20120718
  Transmission Date: 20120928
  Serious: Yes (Other)
  Sender: FDA-Public Use
  Company Number: IT-JNJFOC-20120710622

PATIENT
  Age: 46 Year
  Sex: Female
  Weight: 60 kg

DRUGS (2)
  1. INVEGA [Suspect]
     Indication: PRODUCT USED FOR UNKNOWN INDICATION
     Route: 048
     Dates: start: 20120718, end: 20120718
  2. CYMBALTA [Suspect]
     Indication: PRODUCT USED FOR UNKNOWN INDICATION
     Route: 048
     Dates: start: 20120718, end: 20120718

REACTIONS (6)
  - DYSARTHRIA [None]
  - CONFUSIONAL STATE [None]
  - SELF INJURIOUS BEHAVIOUR [None]
  - TACHYCARDIA [None]
  - MIOSIS [None]
  - AGITATION [None]
